FAERS Safety Report 6526973-9 (Version None)
Quarter: 2010Q1

REPORT INFORMATION
  Report Type: 
  Country: None (occurrence: None)
  Receive Date: 20100104
  Receipt Date: 20100104
  Transmission Date: 20100710
  Serious: Yes (Other)
  Sender: FDA-Public Use
  Company Number: None

PATIENT
  Age: 79 Year
  Sex: Female
  Weight: 57.6068 kg

DRUGS (1)
  1. GABAPENTIN [Suspect]
     Indication: HERPES ZOSTER
     Dosage: 300MG CAP 3X DAY P.O. 2 DOSES ON 1ST DAY
     Route: 048

REACTIONS (4)
  - DYSARTHRIA [None]
  - EYE PAIN [None]
  - GAIT DISTURBANCE [None]
  - HEADACHE [None]
